FAERS Safety Report 8470925-9 (Version None)
Quarter: 2012Q2

REPORT INFORMATION
  Report Type: 
  Country: None (occurrence: None)
  Receive Date: 20120323
  Receipt Date: 20111003
  Transmission Date: 20120825
  Serious: Yes (Other)
  Sender: FDA-Public Use
  Company Number: 163-21880-11081695

PATIENT
  Age: 60 Year
  Sex: Male

DRUGS (1)
  1. REVLIMID [Suspect]
     Indication: MULTIPLE MYELOMA
     Dosage: 25 MG, 3 WEEKS ON, 1 WEEK OFF, PO
     Route: 048
     Dates: start: 20110608, end: 20110808

REACTIONS (2)
  - PRURITUS [None]
  - SWELLING FACE [None]
